FAERS Safety Report 11164968 (Version 3)
Quarter: 2015Q3

REPORT INFORMATION
  Report Type: Report from Study
  Country: PT (occurrence: PT)
  Receive Date: 20150604
  Receipt Date: 20150817
  Transmission Date: 20151125
  Serious: Yes (Disabling)
  Sender: FDA-Public Use
  Company Number: PHHY2015PT063345

PATIENT
  Age: 42 Year
  Sex: Female

DRUGS (1)
  1. EXTAVIA [Suspect]
     Active Substance: INTERFERON BETA-1B
     Indication: MULTIPLE SCLEROSIS
     Dosage: 250 MCG/ML, QOD
     Route: 058
     Dates: start: 20150423

REACTIONS (13)
  - Arthralgia [Recovering/Resolving]
  - Fatigue [Unknown]
  - Muscle contractions involuntary [Unknown]
  - Sleep disorder [Unknown]
  - Multiple sclerosis relapse [Unknown]
  - Mobility decreased [Unknown]
  - Oedema peripheral [Unknown]
  - Injection site pain [Recovering/Resolving]
  - Paraesthesia [Not Recovered/Not Resolved]
  - Malaise [Unknown]
  - Drug administration error [Unknown]
  - Injection site erythema [Recovering/Resolving]
  - Pain [Unknown]

NARRATIVE: CASE EVENT DATE: 20150724
